FAERS Safety Report 4319874-8 (Version None)
Quarter: 2004Q1

REPORT INFORMATION
  Report Type: 
  Country: None (occurrence: None)
  Receive Date: 20040316
  Receipt Date: 20040310
  Transmission Date: 20041129
  Serious: Yes (Hospitalization)
  Sender: FDA-Public Use
  Company Number: 2004203022US

PATIENT
  Age: 61 Year
  Sex: Male
  Weight: 74.8 kg

DRUGS (2)
  1. CELEBREX [Suspect]
     Indication: RENAL CELL CARCINOMA STAGE UNSPECIFIED
     Dosage: 400 MG, BID, ORAL
     Route: 048
     Dates: start: 20040225, end: 20040305
  2. INTERFERON ALFA (INTERFERON ALFA) [Suspect]
     Indication: RENAL CELL CARCINOMA STAGE UNSPECIFIED
     Dosage: 3 MIU, QD, SUBCUTANEOUS
     Route: 058
     Dates: start: 20040225, end: 20040305

REACTIONS (4)
  - ASTHENIA [None]
  - DEHYDRATION [None]
  - NAUSEA [None]
  - VOMITING [None]
